FAERS Safety Report 9330450 (Version 1)
Quarter: 2013Q2

REPORT INFORMATION
  Report Type: Spontaneous
  Country: US (occurrence: US)
  Receive Date: 20130605
  Receipt Date: 20130605
  Transmission Date: 20140414
  Serious: No
  Sender: FDA-Public Use
  Company Number: US-BIOGENIDEC-2013BI050169

PATIENT
  Age: 45 Year
  Sex: Male

DRUGS (1)
  1. TYSABRI [Suspect]
     Indication: MULTIPLE SCLEROSIS
     Route: 042
     Dates: start: 20080404

REACTIONS (6)
  - Intervertebral disc protrusion [Not Recovered/Not Resolved]
  - Back injury [Recovered/Resolved]
  - Gastrointestinal injury [Not Recovered/Not Resolved]
  - Abdominal hernia [Not Recovered/Not Resolved]
  - Fall [Recovered/Resolved]
  - Asthenia [Recovered/Resolved with Sequelae]
